FAERS Safety Report 7305994-2 (Version None)
Quarter: 2011Q1

REPORT INFORMATION
  Report Type: 
  Country: None (occurrence: None)
  Receive Date: 20110222
  Receipt Date: 20110209
  Transmission Date: 20110831
  Serious: Yes (Other)
  Sender: FDA-Public Use
  Company Number: US-WATSON-2011-02178

PATIENT

DRUGS (5)
  1. ACETAMINOPHEN AND CODEINE PHOSPHATE [Suspect]
     Indication: PAIN
     Dosage: UNK
  2. TRAMADOL HCL [Suspect]
     Indication: PAIN
     Dosage: UNK
  3. PROPOXYPHENE HCL AND ACETAMINOPHEN [Suspect]
     Indication: PAIN
     Dosage: UNK
  4. HYDROCODONE BITARTRATE AND ACETAMINOPHEN [Suspect]
     Indication: PAIN
     Dosage: UNK
  5. OXYCODONE HCL [Suspect]
     Indication: PAIN
     Dosage: UNK

REACTIONS (10)
  - GASTROINTESTINAL HAEMORRHAGE [None]
  - MYOCARDIAL INFARCTION [None]
  - CEREBROVASCULAR ACCIDENT [None]
  - HEPATOTOXICITY [None]
  - DEATH [None]
  - INTESTINAL OBSTRUCTION [None]
  - FRACTURE [None]
  - CARDIOVASCULAR DISORDER [None]
  - CARDIAC FAILURE [None]
  - RENAL FAILURE [None]
